FAERS Safety Report 23387858 (Version 1)
Quarter: 2024Q1

REPORT INFORMATION
  Report Type: Spontaneous
  Country: US (occurrence: None)
  Receive Date: 20240109
  Receipt Date: 20240109
  Transmission Date: 20240409
  Serious: Yes (Hospitalization)
  Sender: FDA-Public Use
  Company Number: None

PATIENT
  Age: 58 Year
  Sex: Male

DRUGS (2)
  1. ZELBORAF [Suspect]
     Active Substance: VEMURAFENIB
     Indication: Malignant melanoma
     Route: 048
     Dates: start: 20230520
  2. COTELLIC 20MG [Concomitant]

REACTIONS (7)
  - Dry mouth [None]
  - Diarrhoea [None]
  - Constipation [None]
  - Joint swelling [None]
  - Peripheral swelling [None]
  - Swollen tongue [None]
  - Dysphagia [None]

NARRATIVE: CASE EVENT DATE: 20230401
